FAERS Safety Report 8249950-9 (Version None)
Quarter: 2012Q2

REPORT INFORMATION
  Report Type: 
  Country: None (occurrence: None)
  Receive Date: 20120402
  Receipt Date: 20120326
  Transmission Date: 20120825
  Serious: Yes (Other)
  Sender: FDA-Public Use
  Company Number: IT-JNJFOC-20120312513

PATIENT
  Age: 28 Year
  Sex: Male
  Weight: 120 kg

DRUGS (1)
  1. INVEGA [Suspect]
     Indication: PRODUCT USED FOR UNKNOWN INDICATION
     Route: 048
     Dates: start: 20120326, end: 20120326

REACTIONS (2)
  - SELF-MEDICATION [None]
  - TACHYCARDIA [None]
